FAERS Safety Report 4756647-6 (Version None)
Quarter: 2005Q3

REPORT INFORMATION
  Report Type: 
  Country: None (occurrence: None)
  Receive Date: 20050830
  Receipt Date: 20050812
  Transmission Date: 20060218
  Serious: Yes (Other)
  Sender: FDA-Public Use
  Company Number: US-GLAXOSMITHKLINE-A0570080A

PATIENT
  Age: 26 Year
  Sex: Male
  Weight: 72.7 kg

DRUGS (2)
  1. LAMICTAL [Suspect]
     Dosage: 25MG PER DAY
     Route: 048
     Dates: start: 20050705, end: 20050705
  2. LITHIUM [Suspect]
     Indication: BIPOLAR DISORDER
     Dosage: 600MG TWICE PER DAY
     Route: 048
     Dates: start: 20010101

REACTIONS (2)
  - CATAPLEXY [None]
  - DRUG INTERACTION [None]
